FAERS Safety Report 13113728 (Version 1)
Quarter: 2017Q1

REPORT INFORMATION
  Report Type: Spontaneous
  Country: IT (occurrence: IT)
  Receive Date: 20170113
  Receipt Date: 20170113
  Transmission Date: 20170428
  Serious: Yes (Death, Other)
  Sender: FDA-Public Use
  Company Number: IT-JNJFOC-20170109691

PATIENT

DRUGS (2)
  1. DOXORUBICIN HYDROCHLORIDE. [Suspect]
     Active Substance: DOXORUBICIN HYDROCHLORIDE
     Indication: HEPATOCELLULAR CARCINOMA
     Route: 013
  2. LIPIDOL (ALIBENDOL) [Suspect]
     Active Substance: ALIBENDOL
     Indication: HEPATOCELLULAR CARCINOMA
     Route: 013

REACTIONS (5)
  - Product use issue [Unknown]
  - Incorrect route of drug administration [Unknown]
  - Off label use [Unknown]
  - Death [Fatal]
  - Liver transplant [None]
